FAERS Safety Report 21203521 (Version 1)
Quarter: 2022Q3

REPORT INFORMATION
  Report Type: Spontaneous
  Country: JP (occurrence: JP)
  Receive Date: 20220811
  Receipt Date: 20220811
  Transmission Date: 20221027
  Serious: Yes (Death, Other)
  Sender: FDA-Public Use
  Company Number: JP-PFIZER INC-PV202200040941

PATIENT
  Age: 2 Month

DRUGS (1)
  1. SIROLIMUS [Suspect]
     Active Substance: SIROLIMUS
     Indication: Lymphangioma
     Dosage: UNK
     Route: 048

REACTIONS (2)
  - Hypertrophic cardiomyopathy [Fatal]
  - Product administered to patient of inappropriate age [Unknown]
